FAERS Safety Report 10475291 (Version 3)
Quarter: 2015Q1

REPORT INFORMATION
  Report Type: Report from Study
  Country: CA (occurrence: CA)
  Receive Date: 20140925
  Receipt Date: 20150306
  Transmission Date: 20150720
  Serious: Yes (Hospitalization)
  Sender: FDA-Public Use
  Company Number: PHHY2014CA122758

PATIENT
  Sex: Female

DRUGS (2)
  1. AFINITOR [Suspect]
     Active Substance: EVEROLIMUS
     Indication: BREAST CANCER
     Dosage: 10 MG, QD
     Route: 048
  2. AFINITOR [Suspect]
     Active Substance: EVEROLIMUS
     Dosage: 5 MG, QD
     Route: 048
     Dates: start: 20140709

REACTIONS (12)
  - Diarrhoea [Unknown]
  - Blood glucose increased [Unknown]
  - Pneumonia [Unknown]
  - Headache [Unknown]
  - Influenza [Unknown]
  - Oral pain [Unknown]
  - Weight decreased [Unknown]
  - Amnesia [Unknown]
  - Ageusia [Unknown]
  - Malaise [Unknown]
  - Lung infection [Unknown]
  - Decreased appetite [Unknown]
